FAERS Safety Report 10700023 (Version 1)
Quarter: 2015Q1

REPORT INFORMATION
  Report Type: Spontaneous
  Country: AT (occurrence: AT)
  Receive Date: 20150109
  Receipt Date: 20150109
  Transmission Date: 20150721
  Serious: Yes (Other)
  Sender: FDA-Public Use
  Company Number: AT-MUNDIPHARMA DS AND PHARMACOVIGILANCE-DEU-2014-0016060

PATIENT
  Age: 22 Year
  Sex: Female

DRUGS (2)
  1. SUBSTITOL RETARD KAPSELN [Suspect]
     Active Substance: MORPHINE SULFATE
     Indication: PRODUCT USED FOR UNKNOWN INDICATION
     Dosage: UNK
     Route: 042
  2. ALCOHOL. [Suspect]
     Active Substance: ALCOHOL
     Indication: PRODUCT USED FOR UNKNOWN INDICATION
     Route: 065

REACTIONS (2)
  - Victim of sexual abuse [Unknown]
  - Drug abuse [Unknown]

NARRATIVE: CASE EVENT DATE: 201405
